FAERS Safety Report 13395597 (Version 1)
Quarter: 2017Q2

REPORT INFORMATION
  Report Type: Spontaneous
  Country: US (occurrence: US)
  Receive Date: 20170401
  Receipt Date: 20170401
  Transmission Date: 20170830
  Serious: No
  Sender: FDA-Public Use
  Company Number: None

PATIENT
  Age: 67 Year
  Sex: Female
  Weight: 8 kg

DRUGS (3)
  1. ESMOPRAZOLE [Concomitant]
  2. VALSARTAN/HYDROCHLOROTHIAZIDE [Suspect]
     Active Substance: HYDROCHLOROTHIAZIDE\VALSARTAN
     Indication: HYPERTENSION
     Dosage: ?          QUANTITY:1 TABLET(S);?
     Route: 048
     Dates: start: 20170302
  3. VITAMIN SUPPLEMENTS [Concomitant]
     Active Substance: VITAMINS

REACTIONS (5)
  - Alopecia [None]
  - Arthralgia [None]
  - Myalgia [None]
  - Neck pain [None]
  - Headache [None]
